FAERS Safety Report 10376149 (Version 1)
Quarter: 2014Q3

REPORT INFORMATION
  Report Type: Spontaneous
  Country: GB (occurrence: GB)
  Receive Date: 20140811
  Receipt Date: 20140811
  Transmission Date: 20150326
  Serious: Yes (Disabling)
  Sender: FDA-Public Use
  Company Number: GB-GLAXOSMITHKLINE-B1020017A

PATIENT
  Age: 66 Year
  Sex: Female

DRUGS (1)
  1. FLIXONASE [Suspect]
     Active Substance: FLUTICASONE PROPIONATE
     Dosage: 800MCG PER DAY
     Route: 045
     Dates: start: 20121130, end: 20121207

REACTIONS (1)
  - Blindness transient [Recovered/Resolved]

NARRATIVE: CASE EVENT DATE: 20121130
